FAERS Safety Report 10522588 (Version 1)
Quarter: 2014Q4

REPORT INFORMATION
  Report Type: Spontaneous
  Country: CN (occurrence: CN)
  Receive Date: 20141016
  Receipt Date: 20141016
  Transmission Date: 20150528
  Serious: Yes (Death)
  Sender: FDA-Public Use
  Company Number: CN-PFIZER INC-2014283336

PATIENT
  Age: 82 Year
  Sex: Female

DRUGS (1)
  1. MS CONTIN [Suspect]
     Active Substance: MORPHINE SULFATE
     Indication: PAIN
     Dosage: 10 MG, 2X/DAY
     Route: 048
     Dates: start: 20130911, end: 20131104

REACTIONS (6)
  - Dry mouth [Recovered/Resolved]
  - Constipation [Recovered/Resolved]
  - Somnolence [Unknown]
  - Lung neoplasm malignant [Fatal]
  - Disease progression [Fatal]
  - Nausea [Recovered/Resolved]

NARRATIVE: CASE EVENT DATE: 20130913
